FAERS Safety Report 9638700 (Version 1)
Quarter: 2013Q4

REPORT INFORMATION
  Report Type: Spontaneous
  Country: US (occurrence: US)
  Receive Date: 20131022
  Receipt Date: 20131022
  Transmission Date: 20140711
  Serious: No
  Sender: FDA-Public Use
  Company Number: US-BRISTOL-MYERS SQUIBB COMPANY-19246149

PATIENT
  Age: 76 Year
  Sex: Female
  Weight: 97.5 kg

DRUGS (1)
  1. ELIQUIS [Suspect]
     Indication: ATRIAL FIBRILLATION
     Dates: start: 20130829

REACTIONS (3)
  - Nausea [Unknown]
  - Eructation [Unknown]
  - Dizziness [Unknown]
